FAERS Safety Report 7423992-5 (Version None)
Quarter: 2011Q2

REPORT INFORMATION
  Report Type: 
  Country: None (occurrence: None)
  Receive Date: 20110419
  Receipt Date: 20110418
  Transmission Date: 20111010
  Serious: Yes (Hospitalization)
  Sender: FDA-Public Use
  Company Number: D0061047A

PATIENT
  Age: 48 Year
  Sex: Female

DRUGS (12)
  1. SYMBICORT [Suspect]
     Route: 055
  2. SIFROL [Suspect]
     Route: 065
  3. MOTILIUM [Suspect]
     Route: 065
  4. PANTOLOC [Suspect]
     Dosage: 20MG PER DAY
     Route: 065
  5. LEVOCETIRIZINE HYDROCHLORIDE [Suspect]
     Route: 065
  6. MADOPAR [Suspect]
     Route: 065
  7. CONCOR COR [Suspect]
     Dosage: 2.5MG PER DAY
     Route: 065
  8. BRICANYL [Concomitant]
     Route: 065
  9. REQUIP [Suspect]
     Dosage: 24MG PER DAY
     Route: 048
  10. AZILECT [Suspect]
     Route: 065
  11. STALEVO 100 [Suspect]
     Route: 065
     Dates: start: 20090101
  12. SINGULAIR [Concomitant]
     Route: 065

REACTIONS (9)
  - VOMITING [None]
  - EYE MOVEMENT DISORDER [None]
  - MUSCLE SPASMS [None]
  - NAUSEA [None]
  - ACCOMMODATION DISORDER [None]
  - VISUAL FIELD DEFECT [None]
  - GASTROINTESTINAL HAEMORRHAGE [None]
  - INAPPROPRIATE SCHEDULE OF DRUG ADMINISTRATION [None]
  - FATIGUE [None]
